FAERS Safety Report 9230453 (Version 1)
Quarter: 2013Q2

REPORT INFORMATION
  Report Type: Spontaneous
  Country: US (occurrence: US)
  Receive Date: 20130415
  Receipt Date: 20130415
  Transmission Date: 20140414
  Serious: Yes (Other)
  Sender: FDA-Public Use
  Company Number: US-PFIZER INC-2013116435

PATIENT
  Age: 49 Year
  Sex: Female
  Weight: 109 kg

DRUGS (1)
  1. LIPITOR [Suspect]
     Dosage: UNK
     Dates: start: 201108, end: 201111

REACTIONS (1)
  - Diabetes mellitus [Not Recovered/Not Resolved]
